FAERS Safety Report 9490546 (Version 1)
Quarter: 2013Q3

REPORT INFORMATION
  Report Type: Spontaneous
  Country: IN (occurrence: None)
  Receive Date: 20130826
  Receipt Date: 20130826
  Transmission Date: 20140515
  Serious: Yes (Death, Hospitalization)
  Sender: FDA-Public Use
  Company Number: IPC201308-000333

PATIENT
  Age: 29 Year
  Sex: Female

DRUGS (1)
  1. WARFARIN [Suspect]
     Indication: PULMONARY EMBOLISM
     Route: 048

REACTIONS (5)
  - Skin necrosis [None]
  - Pulmonary tuberculosis [None]
  - Pulmonary tuberculosis [None]
  - Herpes zoster [None]
  - International normalised ratio increased [None]
